FAERS Safety Report 15941578 (Version 2)
Quarter: 2019Q1

REPORT INFORMATION
  Report Type: Spontaneous
  Country: US (occurrence: US)
  Receive Date: 20190208
  Receipt Date: 20190306
  Transmission Date: 20190417
  Serious: Yes (Other)
  Sender: FDA-Public Use
  Company Number: US-ASTRAZENECA-2018SF34861

PATIENT
  Age: 24515 Day

DRUGS (36)
  1. AMOXICILLIN. [Concomitant]
     Active Substance: AMOXICILLIN
  2. FLUCONAZOLE. [Concomitant]
     Active Substance: FLUCONAZOLE
  3. SPIRIVA [Concomitant]
     Active Substance: TIOTROPIUM BROMIDE MONOHYDRATE
  4. CITALOPRAM [Concomitant]
     Active Substance: CITALOPRAM HYDROBROMIDE
  5. PROPOXYPHEN-APAP [Concomitant]
  6. TEMAZEPAM. [Concomitant]
     Active Substance: TEMAZEPAM
  7. PROVENTIL HFA [Concomitant]
     Active Substance: ALBUTEROL SULFATE
  8. FUROSEMIDE. [Concomitant]
     Active Substance: FUROSEMIDE
  9. TEMAZEPAM. [Concomitant]
     Active Substance: TEMAZEPAM
  10. NITROFURANTOIN. [Concomitant]
     Active Substance: NITROFURANTOIN
  11. LEVOTHYROXINE. [Concomitant]
     Active Substance: LEVOTHYROXINE
  12. METHYLPREDNISOLONE. [Concomitant]
     Active Substance: METHYLPREDNISOLONE
  13. PROAIR HFA [Concomitant]
     Active Substance: ALBUTEROL SULFATE
  14. METFORMIN [Concomitant]
     Active Substance: METFORMIN HYDROCHLORIDE
  15. NYSTATIN. [Concomitant]
     Active Substance: NYSTATIN
  16. BENZONATATE. [Concomitant]
     Active Substance: BENZONATATE
  17. FENOFIBRATE. [Concomitant]
     Active Substance: FENOFIBRATE
  18. PRILOSEC OTC [Suspect]
     Active Substance: OMEPRAZOLE MAGNESIUM
     Route: 048
     Dates: start: 20130801, end: 20190115
  19. PREDNISONE. [Concomitant]
     Active Substance: PREDNISONE
  20. HYDROCODON-ACETAMINOPHEN [Concomitant]
     Active Substance: ACETAMINOPHEN\HYDROCODONE
  21. KLOR-CON [Concomitant]
     Active Substance: POTASSIUM CHLORIDE
  22. COMBIVENT [Concomitant]
     Active Substance: ALBUTEROL SULFATE\IPRATROPIUM BROMIDE
  23. PRILOSEC OTC [Suspect]
     Active Substance: OMEPRAZOLE MAGNESIUM
     Dosage: OMEPRAZOLE GENERIC
     Route: 048
     Dates: start: 20090202
  24. AZITHROMYCIN ANHYDROUS. [Concomitant]
     Active Substance: AZITHROMYCIN ANHYDROUS
  25. MIRTAZAPINE. [Concomitant]
     Active Substance: MIRTAZAPINE
  26. LEVOXYL [Concomitant]
     Active Substance: LEVOTHYROXINE SODIUM
  27. PREDNISONE. [Concomitant]
     Active Substance: PREDNISONE
  28. SINGULAIR [Concomitant]
     Active Substance: MONTELUKAST SODIUM
  29. ATROVENT HFA [Concomitant]
     Active Substance: IPRATROPIUM BROMIDE
  30. SYNTHROID [Concomitant]
     Active Substance: LEVOTHYROXINE SODIUM
  31. ALPRAZOLAM. [Concomitant]
     Active Substance: ALPRAZOLAM
  32. OMEPRAZOLE. [Concomitant]
     Active Substance: OMEPRAZOLE
     Route: 048
  33. SEREVENT DISKUS [Concomitant]
     Active Substance: SALMETEROL XINAFOATE
  34. BENZONATATE. [Concomitant]
     Active Substance: BENZONATATE
  35. MONTELUKAST [Concomitant]
     Active Substance: MONTELUKAST SODIUM
  36. MIRTAZAPINE. [Concomitant]
     Active Substance: MIRTAZAPINE

REACTIONS (2)
  - Renal injury [Unknown]
  - Chronic kidney disease [Unknown]

NARRATIVE: CASE EVENT DATE: 20160126
